FAERS Safety Report 6208947-0 (Version None)
Quarter: 2009Q2

REPORT INFORMATION
  Report Type: 
  Country: None (occurrence: None)
  Receive Date: 20090522
  Receipt Date: 20090123
  Transmission Date: 20091009
  Serious: No
  Sender: FDA-Public Use
  Company Number: 8041746

PATIENT
  Age: 26 Year
  Sex: Female
  Weight: 83.9 kg

DRUGS (6)
  1. CIMZIA [Suspect]
     Indication: CROHN'S DISEASE
     Dosage: 400 MG SC
     Route: 058
     Dates: start: 20060701
  2. ASACOL [Concomitant]
  3. BIRTH CONTROL PILLS [Concomitant]
  4. IRON [Concomitant]
  5. MULTI-VITAMIN [Concomitant]
  6. SKELAXIN [Concomitant]

REACTIONS (3)
  - ABDOMINAL PAIN [None]
  - FREQUENT BOWEL MOVEMENTS [None]
  - MALAISE [None]
